FAERS Safety Report 4323447-0 (Version None)
Quarter: 2004Q1

REPORT INFORMATION
  Report Type: 
  Country: None (occurrence: None)
  Receive Date: 20040325
  Receipt Date: 20040310
  Transmission Date: 20041129
  Serious: Yes (Life-Threatening)
  Sender: FDA-Public Use
  Company Number: JP-ROCHE-361402

PATIENT
  Age: 37 Year
  Sex: Male
  Weight: 75 kg

DRUGS (1)
  1. TAMIFLU [Suspect]
     Route: 048
     Dates: start: 20040301, end: 20040304

REACTIONS (5)
  - COMA HEPATIC [None]
  - HAEMODIALYSIS [None]
  - HEPATITIS FULMINANT [None]
  - RENAL FAILURE ACUTE [None]
  - RESPIRATORY FAILURE [None]
